FAERS Safety Report 19790151 (Version 9)
Quarter: 2022Q2

REPORT INFORMATION
  Report Type: Spontaneous
  Country: US (occurrence: US)
  Receive Date: 20210905
  Receipt Date: 20220620
  Transmission Date: 20220720
  Serious: Yes (Hospitalization, Other)
  Sender: FDA-Public Use
  Company Number: US-GLAXOSMITHKLINE-US2021AMR183356

PATIENT

DRUGS (1)
  1. ZEJULA [Suspect]
     Active Substance: NIRAPARIB
     Indication: Ovarian cancer
     Dosage: 300 MG, QD
     Dates: start: 20210709, end: 20210927

REACTIONS (8)
  - Upper respiratory tract infection [Not Recovered/Not Resolved]
  - Hallucination [Recovering/Resolving]
  - Hyponatraemia [Unknown]
  - Dysmenorrhoea [Recovered/Resolved]
  - Nasopharyngitis [Unknown]
  - Abdominal pain [Recovering/Resolving]
  - Abdominal pain upper [Unknown]
  - Menopausal symptoms [Unknown]

NARRATIVE: CASE EVENT DATE: 20210730
